FAERS Safety Report 6567312-7 (Version None)
Quarter: 2010Q1

REPORT INFORMATION
  Report Type: 
  Country: None (occurrence: None)
  Receive Date: 20100202
  Receipt Date: 20100121
  Transmission Date: 20100710
  Serious: Yes (Hospitalization)
  Sender: FDA-Public Use
  Company Number: PHHY2010GB04605

PATIENT
  Sex: Male

DRUGS (2)
  1. CLOZARIL [Suspect]
     Indication: SCHIZOPHRENIA
     Dosage: UNK
     Dates: start: 20040106
  2. CLOZARIL [Suspect]
     Dosage: UNK
     Dates: end: 20100119

REACTIONS (4)
  - FAECAL VOMITING [None]
  - NEUTROPHIL COUNT INCREASED [None]
  - POLYPECTOMY [None]
  - WHITE BLOOD CELL COUNT INCREASED [None]
